FAERS Safety Report 9172879 (Version 1)
Quarter: 2012Q4

REPORT INFORMATION
  Report Type: 
  Country: US (occurrence: US)
  Receive Date: 20120911
  Receipt Date: 20120911
  Transmission Date: 20130627
  Serious: No
  Sender: FDA-Public Use
  Company Number: US-ASTRAZENECA-2012SE60622

PATIENT
  Age: 67 Year
  Sex: Female
  Weight: 72.6 kg

DRUGS (4)
  1. PULMICORT FLEXHALER [Suspect]
     Indication: CHRONIC OBSTRUCTIVE PULMONARY DISEASE
     Dosage: TWO PUFF IN THE MORNING AND TWO PUFF AT NIGHT
     Route: 055
  2. FORADIL AEROLIZER [Concomitant]
  3. SPIRIVA [Concomitant]
  4. THEOPHYLLINE [Concomitant]

REACTIONS (4)
  - Asthma [Unknown]
  - Abdominal discomfort [Unknown]
  - Circumstance or information capable of leading to medication error [Unknown]
  - Off label use [Unknown]
